FAERS Safety Report 5238173-3 (Version None)
Quarter: 2007Q1

REPORT INFORMATION
  Report Type: 
  Country: None (occurrence: None)
  Receive Date: 20070215
  Receipt Date: 20070202
  Transmission Date: 20070707
  Serious: Yes (Hospitalization, Other)
  Sender: FDA-Public Use
  Company Number: PHHO2007IE02914

PATIENT
  Age: 45 Year
  Sex: Female

DRUGS (1)
  1. LETROZOLE [Suspect]
     Indication: BREAST CANCER METASTATIC
     Dosage: 2.5 MG, QD
     Route: 048
     Dates: start: 20051024

REACTIONS (3)
  - INGROWING NAIL [None]
  - NAIL OPERATION [None]
  - PARONYCHIA [None]
